FAERS Safety Report 12340768 (Version 4)
Quarter: 2016Q2

REPORT INFORMATION
  Report Type: Spontaneous
  Country: ES (occurrence: ES)
  Receive Date: 20160506
  Receipt Date: 20160513
  Transmission Date: 20160815
  Serious: Yes (Other)
  Sender: FDA-Public Use
  Company Number: ES-ACTAVIS-2016-09413

PATIENT
  Age: 71 Year
  Sex: Female

DRUGS (14)
  1. MIRTAZAPINE (UNKNOWN) [Interacting]
     Active Substance: MIRTAZAPINE
     Indication: INITIAL INSOMNIA
     Dosage: 7.5 MG, QPM
     Route: 065
  2. LORAZEPAM. [Concomitant]
     Active Substance: LORAZEPAM
     Indication: PRODUCT USED FOR UNKNOWN INDICATION
     Dosage: 0.5 MG, DAILY
     Route: 065
  3. SIMVASTATIN. [Concomitant]
     Active Substance: SIMVASTATIN
     Indication: PRODUCT USED FOR UNKNOWN INDICATION
     Dosage: 20 MG: 0-0-1
     Route: 065
  4. FUROSEMIDE. [Concomitant]
     Active Substance: FUROSEMIDE
     Indication: PRODUCT USED FOR UNKNOWN INDICATION
     Dosage: 40 MG: 2-0-0
     Route: 065
  5. TRAMADOL HYDROCHLORIDE. [Concomitant]
     Active Substance: TRAMADOL HYDROCHLORIDE
     Indication: PRODUCT USED FOR UNKNOWN INDICATION
     Dosage: 75 MG: 1-0-1
     Route: 065
  6. FENTANYL. [Interacting]
     Active Substance: FENTANYL
     Indication: BACK PAIN
     Dosage: 50 MG/10 CM2 (1 DF EVERY 72 HOURS)
     Route: 062
  7. PREGABALIN. [Concomitant]
     Active Substance: PREGABALIN
     Indication: PRODUCT USED FOR UNKNOWN INDICATION
     Dosage: 75 MG: 0-0-1
     Route: 065
  8. FENTANYL. [Interacting]
     Active Substance: FENTANYL
     Dosage: 25 MG/10 CM2 (1 DF EVERY 72 HOURS)
     Route: 062
  9. BISOPROLOL [Concomitant]
     Active Substance: BISOPROLOL
     Indication: PRODUCT USED FOR UNKNOWN INDICATION
     Dosage: 5 MG: 1-0-0
     Route: 065
  10. PARACETAMOL [Concomitant]
     Active Substance: ACETAMINOPHEN
     Indication: PRODUCT USED FOR UNKNOWN INDICATION
     Dosage: 1 G: 1-1-1
     Route: 065
  11. SPIRONOLACTONE. [Concomitant]
     Active Substance: SPIRONOLACTONE
     Indication: PRODUCT USED FOR UNKNOWN INDICATION
     Dosage: 25 MG: 1-0-0
     Route: 065
  12. ENALAPRIL [Concomitant]
     Active Substance: ENALAPRIL
     Indication: PRODUCT USED FOR UNKNOWN INDICATION
     Dosage: 5 MG: 1-0-0
     Route: 065
  13. DULOXETINE (UNKNOWN) [Suspect]
     Active Substance: DULOXETINE
     Indication: PRODUCT USED FOR UNKNOWN INDICATION
     Dosage: 30 MG: 1-0-0
     Route: 065
  14. ACENOCOUMAROL [Concomitant]
     Active Substance: ACENOCOUMAROL
     Indication: PRODUCT USED FOR UNKNOWN INDICATION
     Dosage: AS PRESCRIBED
     Route: 065

REACTIONS (4)
  - Myoclonus [Recovering/Resolving]
  - Neurotoxicity [Recovering/Resolving]
  - Drug interaction [Recovering/Resolving]
  - Overdose [Recovering/Resolving]
